FAERS Safety Report 16372294 (Version 2)
Quarter: 2022Q1

REPORT INFORMATION
  Report Type: Spontaneous
  Country: GB (occurrence: GB)
  Receive Date: 20190530
  Receipt Date: 20220324
  Transmission Date: 20220423
  Serious: Yes (Life-Threatening, Hospitalization, Disabling, Other)
  Sender: FDA-Public Use
  Company Number: None

PATIENT
  Age: 28 Year
  Sex: Female

DRUGS (4)
  1. FLUOXETINE HYDROCHLORIDE [Suspect]
     Active Substance: FLUOXETINE HYDROCHLORIDE
     Indication: Depression
     Dosage: 40 MILLIGRAM DAILY;
     Route: 048
     Dates: start: 20180606, end: 20180619
  2. FLUOXETINE HYDROCHLORIDE [Suspect]
     Active Substance: FLUOXETINE HYDROCHLORIDE
     Indication: Anxiety
     Dosage: 160 MG
  3. ALPRAZOLAM [Concomitant]
     Active Substance: ALPRAZOLAM
  4. PROMETHAZINE [Concomitant]
     Active Substance: PROMETHAZINE HYDROCHLORIDE

REACTIONS (8)
  - Agitation [Unknown]
  - Suicide attempt [Recovering/Resolving]
  - Suicidal behaviour [Not Recovered/Not Resolved]
  - Obsessive-compulsive disorder [Unknown]
  - Anxiety [Unknown]
  - Agitation [Unknown]
  - Condition aggravated [Unknown]
  - Maternal exposure during pregnancy [Unknown]

NARRATIVE: CASE EVENT DATE: 20180610
